FAERS Safety Report 4822014-X (Version None)
Quarter: 2005Q4

REPORT INFORMATION
  Report Type: 
  Country: None (occurrence: None)
  Receive Date: 20051107
  Receipt Date: 20051026
  Transmission Date: 20060501
  Serious: Yes (Hospitalization)
  Sender: FDA-Public Use
  Company Number: US-JNJFOC-20051006124

PATIENT
  Sex: Female
  Weight: 156.49 kg

DRUGS (14)
  1. DURAGESIC-100 [Suspect]
     Route: 062
     Dates: start: 20020101
  2. DURAGESIC-100 [Suspect]
     Route: 062
     Dates: start: 20020101
  3. VICODIN [Concomitant]
     Route: 048
     Dates: start: 20020101
  4. VICODIN [Concomitant]
     Indication: PAIN
     Route: 048
     Dates: start: 20020101
  5. GLUCOPHAGE [Concomitant]
     Route: 048
     Dates: start: 20000101
  6. FUROSEMIDE [Concomitant]
     Indication: FLUID RETENTION
     Route: 048
     Dates: start: 19900101, end: 20050601
  7. HYDROCHLORATHIAZIDE [Concomitant]
     Indication: FLUID RETENTION
     Route: 048
     Dates: start: 20010101
  8. ZOLOFT [Concomitant]
     Indication: ANXIETY
     Route: 048
     Dates: start: 20020101
  9. ASPIRIN [Concomitant]
     Route: 048
     Dates: start: 19900101
  10. ALLEGRA [Concomitant]
     Indication: SEASONAL ALLERGY
     Dosage: TREATMENT INITITED MANY YEARS AGO.
     Route: 048
     Dates: end: 20050101
  11. LOTENSIN [Concomitant]
     Route: 048
     Dates: start: 20020101
  12. GLUCOTROL [Concomitant]
     Route: 048
     Dates: start: 20000101, end: 20050901
  13. TOPROL-XL [Concomitant]
     Route: 048
     Dates: start: 20020101
  14. POTASSIUM [Concomitant]
     Indication: PROPHYLAXIS
     Route: 048
     Dates: start: 19900101

REACTIONS (10)
  - GASTROOESOPHAGEAL REFLUX DISEASE [None]
  - HORMONE LEVEL ABNORMAL [None]
  - HYDROCEPHALUS [None]
  - HYPERGLYCAEMIA [None]
  - INSOMNIA [None]
  - MENINGIOMA [None]
  - MUSCLE SPASMS [None]
  - OEDEMA PERIPHERAL [None]
  - SHUNT INFECTION [None]
  - SINUSITIS [None]
